FAERS Safety Report 7027147-8 (Version None)
Quarter: 2010Q4

REPORT INFORMATION
  Report Type: 
  Country: None (occurrence: None)
  Receive Date: 20101004
  Receipt Date: 20100924
  Transmission Date: 20110411
  Serious: Yes (Other)
  Sender: FDA-Public Use
  Company Number: JP-BRISTOL-MYERS SQUIBB COMPANY-15279276

PATIENT
  Age: 22 Year
  Sex: Female

DRUGS (6)
  1. ABILIFY [Suspect]
     Indication: SCHIZOPHRENIA
     Dosage: 07AUG09-17AUG10(376D)(30MG);18AUG-14SEP10(28D)(24MG);12MG:15SEP10-UNK.
     Route: 048
     Dates: start: 20090807
  2. SEROQUEL [Suspect]
     Indication: RESTLESSNESS
     Dosage: 1 DF:100-400MG IN PM ;200MG QD 06FEB10-UNK.
     Route: 048
     Dates: start: 20100201
  3. CYMBALTA [Suspect]
     Indication: DEPRESSION
     Dosage: 20MG CAPSULES
     Route: 048
     Dates: start: 20100603
  4. BROTIZOLAM [Concomitant]
     Dosage: TABS
     Dates: start: 20090616
  5. ROHYPNOL [Concomitant]
     Dates: start: 20090618
  6. DEPAKENE [Concomitant]
     Dosage: DEPAKENE-R TABS
     Dates: start: 20090626

REACTIONS (1)
  - LOSS OF CONSCIOUSNESS [None]
